FAERS Safety Report 4603016-5 (Version None)
Quarter: 2005Q1

REPORT INFORMATION
  Report Type: 
  Country: None (occurrence: None)
  Receive Date: 20050309
  Receipt Date: 20050302
  Transmission Date: 20050727
  Serious: Yes (Hospitalization)
  Sender: FDA-Public Use
  Company Number: IE-ROCHE-397403

PATIENT
  Age: 59 Year
  Sex: Male

DRUGS (2)
  1. XENICAL [Suspect]
     Indication: OBESITY
     Route: 048
     Dates: start: 20040407, end: 20041215
  2. PLAVIX [Concomitant]
     Route: 048
     Dates: start: 20010615

REACTIONS (1)
  - CEREBROVASCULAR ACCIDENT [None]
